FAERS Safety Report 5284524-3 (Version None)
Quarter: 2007Q2

REPORT INFORMATION
  Report Type: 
  Country: None (occurrence: None)
  Receive Date: 20070403
  Receipt Date: 20070327
  Transmission Date: 20071010
  Serious: Yes (Hospitalization)
  Sender: FDA-Public Use
  Company Number: US-GLAXOSMITHKLINE-A0644835A

PATIENT
  Age: 71 Year
  Sex: Male

DRUGS (3)
  1. ADVAIR DISKUS 100/50 [Suspect]
     Indication: CHRONIC OBSTRUCTIVE PULMONARY DISEASE
     Dosage: 1PUFF TWICE PER DAY
     Route: 055
     Dates: start: 20050101
  2. AVODART [Suspect]
     Indication: BENIGN PROSTATIC HYPERPLASIA
     Dosage: 1CAP PER DAY
     Route: 048
     Dates: start: 20060101, end: 20070101
  3. FLOMAX [Concomitant]

REACTIONS (6)
  - ABDOMINAL PAIN UPPER [None]
  - ARTHRALGIA [None]
  - BREAST MASS [None]
  - GLAUCOMA [None]
  - INTRAOCULAR PRESSURE INCREASED [None]
  - MUSCULOSKELETAL PAIN [None]
